FAERS Safety Report 20835224 (Version 3)
Quarter: 2022Q2

REPORT INFORMATION
  Report Type: Spontaneous
  Country: BR (occurrence: BR)
  Receive Date: 20220516
  Receipt Date: 20220610
  Transmission Date: 20220721
  Serious: No
  Sender: FDA-Public Use
  Company Number: BR-PFIZER INC-202200687489

PATIENT
  Sex: Male

DRUGS (1)
  1. GENOTROPIN [Suspect]
     Active Substance: SOMATROPIN
     Dosage: UNK
     Dates: start: 202204

REACTIONS (3)
  - Device occlusion [Unknown]
  - Wrong technique in device usage process [Unknown]
  - Liquid product physical issue [Unknown]
